FAERS Safety Report 21618471 (Version 1)
Quarter: 2022Q4

REPORT INFORMATION
  Report Type: Report from Study
  Country: US (occurrence: US)
  Receive Date: 20221119
  Receipt Date: 20221119
  Transmission Date: 20230113
  Serious: No
  Sender: FDA-Public Use
  Company Number: US-BIOVITRUM-2022US13108

PATIENT
  Age: 62 Year
  Sex: Female

DRUGS (3)
  1. KINERET [Suspect]
     Active Substance: ANAKINRA
     Indication: Pericarditis adhesive
     Dates: start: 20220418
  2. KINERET [Suspect]
     Active Substance: ANAKINRA
     Dates: start: 20221107
  3. KINERET [Suspect]
     Active Substance: ANAKINRA
     Dates: start: 20221108

REACTIONS (6)
  - Chest pain [Unknown]
  - Tooth abscess [Unknown]
  - Blood cholesterol decreased [Unknown]
  - Pre-existing condition improved [Unknown]
  - Product dose omission issue [Unknown]
  - Off label use [Not Recovered/Not Resolved]

NARRATIVE: CASE EVENT DATE: 20220418
